FAERS Safety Report 8049397-4 (Version None)
Quarter: 2012Q1

REPORT INFORMATION
  Report Type: 
  Country: None (occurrence: None)
  Receive Date: 20120117
  Receipt Date: 20120110
  Transmission Date: 20120608
  Serious: Yes (Death, Other)
  Sender: FDA-Public Use
  Company Number: US-ROCHE-1009656

PATIENT
  Sex: Female
  Weight: 105.78 kg

DRUGS (17)
  1. SPIRIVA [Concomitant]
     Dosage: 1 PUFF EVERY DAY
  2. SINGULAIR [Concomitant]
  3. MAXAIR [Concomitant]
     Indication: ASTHMA
  4. COMBIVENT [Concomitant]
     Dosage: 103 - 18 MCG/ACT, 2 PUFFS Q 4-6 HRS
  5. CYANOCOBALAMIN [Concomitant]
     Dosage: 115-180-10 MCG-MCG-MG
     Route: 048
  6. ALLEGRA [Concomitant]
     Route: 048
  7. ZYFLO CR [Concomitant]
     Dosage: 2 TABS
  8. XOPENEX [Concomitant]
     Dosage: 0.63 MG/3 ML, 1AMP EVERY 4-6 HRS
  9. LIPITOR [Concomitant]
     Route: 048
  10. ASPIRIN [Concomitant]
     Dosage: CHEWABLE
     Route: 048
  11. NIASPAN [Concomitant]
     Dosage: EVERY NIGHT
     Route: 048
  12. FORADIL [Concomitant]
  13. XOLAIR [Suspect]
     Indication: ASTHMA
     Route: 058
     Dates: start: 20090701
  14. DIOVAN HCT [Concomitant]
     Route: 048
  15. SYMBICORT [Concomitant]
     Dosage: 80/4.5, 2 PUFFS
  16. ATROVENT HFA [Concomitant]
     Dosage: 17/MCG/ACT, 2 PUFFS EVERY 4HOURS
  17. LEVAQUIN [Concomitant]
     Route: 048

REACTIONS (2)
  - PNEUMONIA [None]
  - RESPIRATORY FAILURE [None]
